FAERS Safety Report 5397736-5 (Version None)
Quarter: 2007Q3

REPORT INFORMATION
  Report Type: 
  Country: None (occurrence: None)
  Receive Date: 20070726
  Receipt Date: 20070723
  Transmission Date: 20080115
  Serious: Yes (Other)
  Sender: FDA-Public Use
  Company Number: A0440997A

PATIENT
  Age: 47 Year
  Sex: Male

DRUGS (8)
  1. ADVAIR DISKUS 100/50 [Suspect]
     Indication: ASTHMA
     Route: 055
  2. SEREVENT [Suspect]
     Indication: ASTHMA
     Route: 055
  3. FLOVENT [Suspect]
     Indication: ASTHMA
     Dosage: 110MCG TWICE PER DAY
     Route: 055
  4. ALBUTEROL [Concomitant]
  5. SINGULAIR [Concomitant]
  6. PROTONIX [Concomitant]
  7. HYDROCHLOROTHIAZIDE [Concomitant]
  8. PRILOSEC [Concomitant]

REACTIONS (12)
  - AGGRESSION [None]
  - ASTHMA [None]
  - CHEST PAIN [None]
  - CONSTIPATION [None]
  - DAYDREAMING [None]
  - DRUG INEFFECTIVE [None]
  - EYE IRRITATION [None]
  - EYE PRURITUS [None]
  - FEELING HOT [None]
  - HEADACHE [None]
  - VISION BLURRED [None]
  - VISUAL DISTURBANCE [None]
